FAERS Safety Report 24009402 (Version 1)
Quarter: 2024Q2

REPORT INFORMATION
  Report Type: Spontaneous
  Country: US (occurrence: None)
  Receive Date: 20240624
  Receipt Date: 20240624
  Transmission Date: 20240716
  Serious: Yes (Life-Threatening, Hospitalization, Other)
  Sender: FDA-Public Use
  Company Number: None

PATIENT
  Age: 43 Year
  Sex: Male
  Weight: 71 kg

DRUGS (4)
  1. HERBALS\MUSHROOMS UNSPECIFIED [Suspect]
     Active Substance: HERBALS\MUSHROOMS UNSPECIFIED
     Indication: Product used for unknown indication
     Dosage: OTHER QUANTITY : 2 PIECES?OTHER FREQUENCY : USED ONCE?
     Route: 048
     Dates: start: 20240616, end: 20240616
  2. CANNABIS SATIVA SUBSP. INDICA TOP [Suspect]
     Active Substance: CANNABIS SATIVA SUBSP. INDICA TOP
  3. NIFEDIPINE [Concomitant]
     Active Substance: NIFEDIPINE
  4. COREG [Concomitant]
     Active Substance: CARVEDILOL

REACTIONS (5)
  - Seizure [None]
  - Nervous system disorder [None]
  - Memory impairment [None]
  - Substance use [None]
  - Alcohol use [None]

NARRATIVE: CASE EVENT DATE: 20240616
